FAERS Safety Report 5220797-0 (Version None)
Quarter: 2007Q1

REPORT INFORMATION
  Report Type: 
  Country: None (occurrence: None)
  Receive Date: 20070126
  Receipt Date: 20070116
  Transmission Date: 20070707
  Serious: Yes (Other)
  Sender: FDA-Public Use
  Company Number: PHEH2006US14422

PATIENT
  Age: 64 Year
  Sex: Male

DRUGS (1)
  1. ZOMETA [Suspect]
     Indication: MULTIPLE MYELOMA
     Dosage: 4MG Q4WK
     Dates: end: 20061023

REACTIONS (2)
  - PAIN [None]
  - PAIN IN JAW [None]
